FAERS Safety Report 7205336-7 (Version None)
Quarter: 2010Q4

REPORT INFORMATION
  Report Type: 
  Country: None (occurrence: None)
  Receive Date: 20101231
  Receipt Date: 20101222
  Transmission Date: 20110411
  Serious: Yes (Life-Threatening, Hospitalization)
  Sender: FDA-Public Use
  Company Number: FR-CELGENEUS-056-21880-10122675

PATIENT
  Age: 62 Year
  Sex: Male

DRUGS (15)
  1. REVLIMID [Suspect]
     Route: 048
     Dates: start: 20101021, end: 20101025
  2. VELCADE [Suspect]
     Route: 051
     Dates: start: 20101021, end: 20101025
  3. DEXAMETHASONE [Suspect]
     Route: 051
     Dates: start: 20101021, end: 20101025
  4. ZELITREX [Concomitant]
     Route: 065
  5. LOVENOX [Concomitant]
     Route: 065
  6. SKENAN [Concomitant]
     Route: 065
     Dates: end: 20101025
  7. ACTISKENAN [Concomitant]
     Route: 065
     Dates: end: 20101025
  8. TETRAZEPAM [Concomitant]
     Route: 065
     Dates: end: 20101025
  9. BACTRIM DS [Concomitant]
     Route: 048
     Dates: end: 20101025
  10. OXYCONTIN [Concomitant]
     Dosage: 5/20MG
     Route: 048
     Dates: end: 20101025
  11. RASILEZ [Concomitant]
     Route: 065
     Dates: end: 20101025
  12. EUPANTOL [Concomitant]
     Route: 065
  13. CACIT VITAMIN D3 [Concomitant]
     Route: 065
  14. NEURONTIN [Concomitant]
     Route: 065
  15. DUPHALAC [Concomitant]
     Route: 065

REACTIONS (3)
  - CONFUSIONAL STATE [None]
  - DISORIENTATION [None]
  - HYPONATRAEMIA [None]
